FAERS Safety Report 6035535-1 (Version None)
Quarter: 2009Q1

REPORT INFORMATION
  Report Type: 
  Country: None (occurrence: None)
  Receive Date: 20090113
  Receipt Date: 20081103
  Transmission Date: 20090719
  Serious: No
  Sender: FDA-Public Use
  Company Number: US-BAYER-200839832NA

PATIENT
  Sex: Female

DRUGS (1)
  1. MIRENA [Suspect]
     Indication: CONTRACEPTION
     Route: 015
     Dates: start: 20080317, end: 20080917

REACTIONS (17)
  - ABDOMINAL DISTENSION [None]
  - AFFECT LABILITY [None]
  - AFFECTIVE DISORDER [None]
  - ALOPECIA [None]
  - ANXIETY [None]
  - DEPRESSED MOOD [None]
  - DEPRESSION [None]
  - GAIT DISTURBANCE [None]
  - GENITAL HAEMORRHAGE [None]
  - HEADACHE [None]
  - PAIN [None]
  - PAIN IN EXTREMITY [None]
  - PELVIC PAIN [None]
  - SENSATION OF HEAVINESS [None]
  - TENSION [None]
  - VAGINAL HAEMORRHAGE [None]
  - WEIGHT INCREASED [None]
